FAERS Safety Report 6903244-X (Version None)
Quarter: 2010Q3

REPORT INFORMATION
  Report Type: 
  Country: None (occurrence: None)
  Receive Date: 20100803
  Receipt Date: 20080613
  Transmission Date: 20110219
  Serious: No
  Sender: FDA-Public Use
  Company Number: US-PFIZER INC-2008050474

PATIENT
  Sex: Female
  Weight: 94.5 kg

DRUGS (6)
  1. LYRICA [Suspect]
     Indication: PAIN
     Route: 048
     Dates: start: 20080301
  2. CELEBREX [Concomitant]
  3. OXYCONTIN [Concomitant]
  4. CYMBALTA [Concomitant]
  5. PROTONIX [Concomitant]
  6. LASIX [Concomitant]

REACTIONS (6)
  - BLISTER [None]
  - DIZZINESS [None]
  - DRUG INEFFECTIVE [None]
  - HYPERSOMNIA [None]
  - RASH MACULAR [None]
  - SKIN LESION [None]
